FAERS Safety Report 6145033-2 (Version None)
Quarter: 2009Q2

REPORT INFORMATION
  Report Type: 
  Country: None (occurrence: None)
  Receive Date: 20090401
  Receipt Date: 20090401
  Transmission Date: 20091009
  Serious: Yes (Hospitalization)
  Sender: FDA-Public Use
  Company Number: None

PATIENT
  Age: 75 Year

DRUGS (1)
  1. AVALIDE [Suspect]
     Indication: HYPERTENSION

REACTIONS (2)
  - STEVENS-JOHNSON SYNDROME [None]
  - URTICARIA [None]
